FAERS Safety Report 19714644 (Version 1)
Quarter: 2021Q3

REPORT INFORMATION
  Report Type: Spontaneous
  Country: US (occurrence: US)
  Receive Date: 20210818
  Receipt Date: 20210818
  Transmission Date: 20211014
  Serious: Yes (Life-Threatening, Other)
  Sender: FDA-Public Use
  Company Number: None

PATIENT
  Sex: Female
  Weight: 60.3 kg

DRUGS (5)
  1. LATUDA [Suspect]
     Active Substance: LURASIDONE HYDROCHLORIDE
     Indication: ATTENTION DEFICIT HYPERACTIVITY DISORDER
     Dosage: ?          QUANTITY:7 TABLET(S);?
     Route: 048
     Dates: start: 20210817, end: 20210818
  2. LATUDA [Suspect]
     Active Substance: LURASIDONE HYDROCHLORIDE
     Indication: BIPOLAR DISORDER
     Dosage: ?          QUANTITY:7 TABLET(S);?
     Route: 048
     Dates: start: 20210817, end: 20210818
  3. SYNTHROID [Concomitant]
     Active Substance: LEVOTHYROXINE SODIUM
  4. ADDERALL [Concomitant]
     Active Substance: AMPHETAMINE ASPARTATE\AMPHETAMINE SULFATE\DEXTROAMPHETAMINE SACCHARATE\DEXTROAMPHETAMINE SULFATE
  5. ZYPREXA [Suspect]
     Active Substance: OLANZAPINE

REACTIONS (9)
  - Acute kidney injury [None]
  - Neuroleptic malignant syndrome [None]
  - Weight increased [None]
  - Jaundice [None]
  - Drug interaction [None]
  - Pharyngeal swelling [None]
  - Hepatic enzyme increased [None]
  - Chest discomfort [None]
  - Toxicity to various agents [None]

NARRATIVE: CASE EVENT DATE: 20210817
